FAERS Safety Report 22297653 (Version 2)
Quarter: 2023Q2

REPORT INFORMATION
  Report Type: Report from Study
  Country: CA (occurrence: CA)
  Receive Date: 20230509
  Receipt Date: 20230530
  Transmission Date: 20230722
  Serious: Yes (Hospitalization)
  Sender: FDA-Public Use
  Company Number: CA-BoehringerIngelheim-2022-BI-161858

PATIENT
  Age: 70 Year
  Sex: Male

DRUGS (4)
  1. OFEV [Suspect]
     Active Substance: NINTEDANIB
     Indication: Idiopathic pulmonary fibrosis
     Dates: start: 20211119
  2. OFEV [Suspect]
     Active Substance: NINTEDANIB
     Dates: end: 20230424
  3. OFEV [Suspect]
     Active Substance: NINTEDANIB
     Dosage: TAKEN ALTERNATIVELY
     Dates: start: 20230505
  4. OFEV [Suspect]
     Active Substance: NINTEDANIB
     Dosage: 1 CAP 150MG AND 1 CAP 100MG DAILY ,
     Route: 048

REACTIONS (5)
  - Gastric ulcer haemorrhage [Recovered/Resolved]
  - Off label use [Unknown]
  - Hypotension [Recovered/Resolved]
  - Weight decreased [Unknown]
  - Diarrhoea [Recovered/Resolved]
